FAERS Safety Report 8756762 (Version 1)
Quarter: 2012Q4

REPORT INFORMATION
  Report Type: 
  Country: US (occurrence: US)
  Receive Date: 20120828
  Receipt Date: 20120828
  Transmission Date: 20130627
  Serious: Yes (Hospitalization)
  Sender: FDA-Public Use
  Company Number: US-BAYER-2012-086645

PATIENT
  Age: 50 Year
  Sex: Female
  Weight: 57 kg

DRUGS (3)
  1. YAZ [Suspect]
     Indication: CONTRACEPTION
  2. GIANVI [Suspect]
  3. ADVIL [Concomitant]
     Dosage: UNK
     Dates: start: 20120320

REACTIONS (1)
  - Pulmonary embolism [None]
